FAERS Safety Report 6313625-3 (Version None)
Quarter: 2009Q3

REPORT INFORMATION
  Report Type: 
  Country: None (occurrence: None)
  Receive Date: 20090814
  Receipt Date: 20090806
  Transmission Date: 20100115
  Serious: Yes (Other)
  Sender: FDA-Public Use
  Company Number: GXKR2009JP08988

PATIENT
  Age: 66 Year
  Sex: Female

DRUGS (4)
  1. RIFAMPICIN [Suspect]
     Indication: PULMONARY TUBERCULOSIS
     Dosage: 450 MG, ORAL
     Route: 048
     Dates: start: 20090425
  2. BACTRIM [Concomitant]
  3. LASIX [Concomitant]
  4. ALDACTONE [Concomitant]

REACTIONS (1)
  - HYPOKALAEMIA [None]
